FAERS Safety Report 26177627 (Version 1)
Quarter: 2025Q4

REPORT INFORMATION
  Report Type: Spontaneous
  Country: EU (occurrence: EU)
  Receive Date: 20251219
  Receipt Date: 20251219
  Transmission Date: 20260117
  Serious: Yes (Other)
  Sender: AUROBINDO
  Company Number: EU-BRISTOL-MYERS SQUIBB COMPANY-2025-160748

PATIENT
  Age: 58 Year
  Sex: Male

DRUGS (14)
  1. CARBOPLATIN [Suspect]
     Active Substance: CARBOPLATIN
     Indication: Non-small cell lung cancer
     Dosage: CYCLE 1, DAY 8
     Route: 065
  2. CARBOPLATIN [Suspect]
     Active Substance: CARBOPLATIN
     Dosage: CYCLE 1, DAY 15
     Route: 065
  3. CARBOPLATIN [Suspect]
     Active Substance: CARBOPLATIN
     Dosage: CYCLE 2 WITHOUT NIVOLUMAB
     Route: 065
  4. OPDIVO [Suspect]
     Active Substance: NIVOLUMAB
     Indication: Non-small cell lung cancer
     Dosage: CYCLE 1, DAY 8
  5. OPDIVO [Suspect]
     Active Substance: NIVOLUMAB
     Dosage: CYCLE 1, DAY 15
  6. PACLITAXEL [Suspect]
     Active Substance: PACLITAXEL
     Indication: Non-small cell lung cancer
     Dosage: CYCLE 1, DAY 8
     Route: 065
  7. PACLITAXEL [Suspect]
     Active Substance: PACLITAXEL
     Dosage: CYCLE 1, DAY 15
     Route: 065
  8. PACLITAXEL [Suspect]
     Active Substance: PACLITAXEL
     Dosage: CYCLE 2 WITHOUT NIVOLUMAB
     Route: 065
  9. APIXABAN [Concomitant]
     Active Substance: APIXABAN
     Indication: Atrial fibrillation
     Dosage: 5 MILLIGRAM, TWO TIMES A DAY
     Route: 061
     Dates: start: 202502
  10. ATORVASTATIN [Concomitant]
     Active Substance: ATORVASTATIN
     Indication: Product used for unknown indication
     Dosage: 20 MILLIGRAM, ONCE A DAY
     Route: 065
     Dates: start: 2024
  11. EMPAGLIFLOZIN [Concomitant]
     Active Substance: EMPAGLIFLOZIN
     Indication: Product used for unknown indication
     Dosage: 10 MILLIGRAM, ONCE A DAY
     Route: 065
     Dates: start: 202504
  12. METOPROLOL [Concomitant]
     Active Substance: METOPROLOL
     Indication: Product used for unknown indication
     Dosage: 95 MILLIGRAM
     Route: 065
  13. SACUBITRIL\VALSARTAN [Concomitant]
     Active Substance: SACUBITRIL\VALSARTAN
     Indication: Product used for unknown indication
     Dosage: 24/26MG
     Route: 065
  14. SPIRONOLACTONE [Concomitant]
     Active Substance: SPIRONOLACTONE
     Indication: Product used for unknown indication
     Dosage: 50 MILLIGRAM, ONCE A DAY
     Route: 065
     Dates: start: 202504

REACTIONS (11)
  - Pneumonia [Unknown]
  - Immune-mediated lung disease [Unknown]
  - Clostridium difficile colitis [Unknown]
  - Pneumocystis jirovecii pneumonia [Unknown]
  - Febrile neutropenia [Unknown]
  - Post procedural complication [Not Recovered/Not Resolved]
  - Hypersensitivity [Unknown]
  - Rash maculo-papular [Recovered/Resolved]
  - Erythema [Recovered/Resolved]
  - Pruritus [Recovered/Resolved]
  - Off label use [Unknown]

NARRATIVE: CASE EVENT DATE: 20250719
